FAERS Safety Report 5806934-5 (Version None)
Quarter: 2008Q3

REPORT INFORMATION
  Report Type: 
  Country: None (occurrence: None)
  Receive Date: 20080711
  Receipt Date: 20080701
  Transmission Date: 20090109
  Serious: Yes (Hospitalization)
  Sender: FDA-Public Use
  Company Number: US-JNJFOC-20080700878

PATIENT
  Sex: Female
  Weight: 72.58 kg

DRUGS (7)
  1. FENTANYL TRANSDERMAL SYSTEM [Suspect]
     Indication: BACK PAIN
     Dosage: 1X 50 UG/HR AND 1X 100 UG/HR PATCHES
     Route: 062
  2. DURAGESIC-100 [Suspect]
     Indication: BACK PAIN
     Dosage: 1X 50 UG/HR AND 1X 100 UG/HR PATCHES
     Route: 062
  3. DIGOXIN [Concomitant]
     Indication: CARDIAC DISORDER
     Route: 048
  4. AMIODARONE HCL [Concomitant]
     Indication: CARDIAC DISORDER
     Route: 048
  5. LISINOPRIL [Concomitant]
     Indication: CARDIAC DISORDER
     Route: 048
  6. LISINOPRIL [Concomitant]
     Indication: BLOOD PRESSURE
     Route: 048
  7. SIMVASTATIN [Concomitant]
     Indication: BLOOD CHOLESTEROL INCREASED
     Route: 048

REACTIONS (2)
  - CHRONIC OBSTRUCTIVE PULMONARY DISEASE [None]
  - WRONG TECHNIQUE IN DRUG USAGE PROCESS [None]
